FAERS Safety Report 6896396-1 (Version None)
Quarter: 2010Q3

REPORT INFORMATION
  Report Type: 
  Country: None (occurrence: None)
  Receive Date: 20100802
  Receipt Date: 20090211
  Transmission Date: 20110219
  Serious: No
  Sender: FDA-Public Use
  Company Number: US-PFIZER INC-2009171089

PATIENT
  Sex: Female

DRUGS (2)
  1. NEURONTIN [Suspect]
     Indication: HOT FLUSH
     Dosage: UNK
  2. NEURONTIN [Suspect]
     Indication: MENOPAUSAL SYMPTOMS

REACTIONS (1)
  - SOMNOLENCE [None]
